FAERS Safety Report 4902495-3 (Version None)
Quarter: 2006Q1

REPORT INFORMATION
  Report Type: 
  Country: None (occurrence: None)
  Receive Date: 20060202
  Receipt Date: 20060123
  Transmission Date: 20060701
  Serious: Yes (Other)
  Sender: FDA-Public Use
  Company Number: 2006011877

PATIENT
  Age: 75 Year
  Sex: Female

DRUGS (1)
  1. LISTERINE (MENTHOL, METHYL SALICYLATE, EUCALYPTOL, THYMOL) [Suspect]
     Indication: DENTAL DISORDER PROPHYLAXIS
     Dosage: SMALL CUP OF COFFEE SIZED AMOUNT
     Route: 048
     Dates: end: 20060121

REACTIONS (3)
  - DENTAL IMPLANTATION [None]
  - GLOSSODYNIA [None]
  - ORAL DISCOMFORT [None]
